FAERS Safety Report 6855994-1 (Version None)
Quarter: 2010Q3

REPORT INFORMATION
  Report Type: 
  Country: None (occurrence: None)
  Receive Date: 20100719
  Receipt Date: 20100713
  Transmission Date: 20110219
  Serious: Yes (Other)
  Sender: FDA-Public Use
  Company Number: US-SANOFI-AVENTIS-2010SA041318

PATIENT
  Sex: Female

DRUGS (2)
  1. AMBIEN [Suspect]
     Route: 048
  2. ASPIRIN [Suspect]
     Route: 065

REACTIONS (4)
  - IMPAIRED DRIVING ABILITY [None]
  - LIMB INJURY [None]
  - ROAD TRAFFIC ACCIDENT [None]
  - WRONG DRUG ADMINISTERED [None]
